FAERS Safety Report 5027169-2 (Version None)
Quarter: 2006Q2

REPORT INFORMATION
  Report Type: 
  Country: None (occurrence: None)
  Receive Date: 20060501
  Receipt Date: 20060125
  Transmission Date: 20061013
  Serious: No
  Sender: FDA-Public Use
  Company Number: 2006PV007655

PATIENT
  Age: 53 Year
  Sex: Female

DRUGS (4)
  1. SYMLIN INJECTION (0.6 MG/ML) [Suspect]
     Indication: DIABETES MELLITUS NON-INSULIN-DEPENDENT
     Dosage: 60 MCG; TID; SC;  30 MCG; TID; SC
     Route: 058
     Dates: start: 20051201, end: 20060101
  2. SYMLIN INJECTION (0.6 MG/ML) [Suspect]
     Indication: DIABETES MELLITUS NON-INSULIN-DEPENDENT
     Dosage: 60 MCG; TID; SC;  30 MCG; TID; SC
     Route: 058
     Dates: start: 20060101
  3. LANTUS [Concomitant]
  4. HUMALOG [Concomitant]

REACTIONS (4)
  - MEDICATION ERROR [None]
  - NO ADVERSE EFFECT [None]
  - WEIGHT DECREASED [None]
  - WRONG DRUG ADMINISTERED [None]
